FAERS Safety Report 8591398-1 (Version None)
Quarter: 2012Q3

REPORT INFORMATION
  Report Type: 
  Country: None (occurrence: None)
  Receive Date: 20120803
  Receipt Date: 20120803
  Transmission Date: 20120928
  Serious: Yes (Disabling, Other)
  Sender: FDA-Public Use
  Company Number: None

PATIENT
  Age: 32 Year
  Sex: Male
  Weight: 77.1115 kg

DRUGS (2)
  1. PROPECIA [Concomitant]
  2. FINASTERIDE [Suspect]
     Indication: ALOPECIA
     Dosage: 1MG DAILY PO
     Route: 048
     Dates: start: 20000601, end: 20120731

REACTIONS (5)
  - BLOOD TESTOSTERONE DECREASED [None]
  - PEYRONIE'S DISEASE [None]
  - ERECTILE DYSFUNCTION [None]
  - PRODUCT LABEL ISSUE [None]
  - EMOTIONAL DISORDER [None]
